FAERS Safety Report 8594531-0 (Version None)
Quarter: 2012Q3

REPORT INFORMATION
  Report Type: 
  Country: None (occurrence: None)
  Receive Date: 20120815
  Receipt Date: 20120807
  Transmission Date: 20120928
  Serious: Yes (Life-Threatening, Hospitalization, Other)
  Sender: FDA-Public Use
  Company Number: US-BAYER-2012-039202

PATIENT
  Age: 40 Year
  Sex: Female
  Weight: 114.29 kg

DRUGS (7)
  1. YAZ [Suspect]
     Indication: VAGINAL HAEMORRHAGE
  2. MULTI-VITAMIN [Concomitant]
     Dosage: UNK UNK, QD
  3. YAZ [Suspect]
     Indication: MENORRHAGIA
     Dosage: UNK
     Route: 048
     Dates: start: 20100101, end: 20100201
  4. YAZ [Suspect]
     Indication: MENSTRUATION IRREGULAR
  5. DILTIAZEM [Concomitant]
  6. FLUCONAZOLE [Concomitant]
     Dosage: UNK
     Dates: start: 20091231
  7. TYLENOL [Concomitant]

REACTIONS (10)
  - PULMONARY EMBOLISM [None]
  - ANGINA PECTORIS [None]
  - INJURY [None]
  - DYSPNOEA [None]
  - DEEP VEIN THROMBOSIS [None]
  - PAIN IN EXTREMITY [None]
  - MENTAL DISORDER [None]
  - PAIN [None]
  - TACHYCARDIA [None]
  - INSOMNIA [None]
